FAERS Safety Report 18202110 (Version 7)
Quarter: 2024Q3

REPORT INFORMATION
  Report Type: Spontaneous
  Country: US (occurrence: US)
  Receive Date: 20200827
  Receipt Date: 20240905
  Transmission Date: 20241017
  Serious: No
  Sender: PFIZER
  Company Number: US-PFIZER INC-2020328262

PATIENT
  Age: 74 Year
  Sex: Female
  Weight: 59.42 kg

DRUGS (17)
  1. XELJANZ [Suspect]
     Active Substance: TOFACITINIB CITRATE
     Indication: Colitis ulcerative
     Dosage: TWO 5MG TABLETS IN THE MORNING AND TWO 5MG TABLETS IN THE EVENING
     Route: 048
     Dates: start: 20200813
  2. XELJANZ [Suspect]
     Active Substance: TOFACITINIB CITRATE
     Dosage: 5 MG, 1X/DAY
     Route: 048
  3. XELJANZ [Suspect]
     Active Substance: TOFACITINIB CITRATE
     Dosage: 5 MG, 2X/DAY
  4. CALCIUM [Concomitant]
     Active Substance: CALCIUM
  5. CRESTOR [Concomitant]
     Active Substance: ROSUVASTATIN CALCIUM
  6. CYANOCOBALAMIN [Concomitant]
     Active Substance: CYANOCOBALAMIN
  7. ESTRADIOL [Concomitant]
     Active Substance: ESTRADIOL
  8. HYZAAR [Concomitant]
     Active Substance: HYDROCHLOROTHIAZIDE\LOSARTAN POTASSIUM
  9. IMODIUM [Concomitant]
     Active Substance: LOPERAMIDE HYDROCHLORIDE
  10. LEVOTHYROXINE [Concomitant]
     Active Substance: LEVOTHYROXINE\LEVOTHYROXINE SODIUM
  11. MOBIC [Concomitant]
     Active Substance: MELOXICAM
  12. PEPCID [Concomitant]
     Active Substance: FAMOTIDINE
  13. POTASSIUM [Concomitant]
     Active Substance: POTASSIUM
  14. PROTONIX [Concomitant]
     Active Substance: PANTOPRAZOLE SODIUM
  15. PROVERA [Concomitant]
     Active Substance: MEDROXYPROGESTERONE ACETATE
  16. SINEQUAN [Concomitant]
     Active Substance: DOXEPIN HYDROCHLORIDE
  17. VALSARTAN [Concomitant]
     Active Substance: VALSARTAN

REACTIONS (6)
  - Fatigue [Unknown]
  - Headache [Unknown]
  - Eye disorder [Unknown]
  - Product dispensing error [Unknown]
  - Intercepted product selection error [Unknown]
  - Off label use [Unknown]
